FAERS Safety Report 10386593 (Version 1)
Quarter: 2014Q3

REPORT INFORMATION
  Report Type: Report from Study
  Country: FR (occurrence: FR)
  Receive Date: 20140815
  Receipt Date: 20140815
  Transmission Date: 20150326
  Serious: Yes (Hospitalization)
  Sender: FDA-Public Use
  Company Number: FR-ROCHE-1449951

PATIENT
  Age: 72 Year
  Sex: Female

DRUGS (1)
  1. ZELBORAF [Suspect]
     Active Substance: VEMURAFENIB
     Indication: NEOPLASM MALIGNANT
     Dosage: 4 DOSES IN THE MORNING AND 4 DOSES IN THE EVENING FOR 1 MONTH IN MAY THEN 3 DOSES IN THE MORNING AND
     Route: 065

REACTIONS (1)
  - Drug intolerance [Unknown]
